FAERS Safety Report 6772095-1 (Version None)
Quarter: 2010Q2

REPORT INFORMATION
  Report Type: 
  Country: None (occurrence: None)
  Receive Date: 20100616
  Receipt Date: 20100614
  Transmission Date: 20101027
  Serious: Yes (Hospitalization)
  Sender: FDA-Public Use
  Company Number: A0865109A

PATIENT
  Age: 48 Year
  Sex: Female

DRUGS (1)
  1. AVANDIA [Suspect]
     Dates: start: 20020201, end: 20050801

REACTIONS (1)
  - CEREBROVASCULAR ACCIDENT [None]
